FAERS Safety Report 10183119 (Version 1)
Quarter: 2014Q2

REPORT INFORMATION
  Report Type: Spontaneous
  Country: US (occurrence: US)
  Receive Date: 20140520
  Receipt Date: 20140520
  Transmission Date: 20141212
  Serious: Yes (Other)
  Sender: FDA-Public Use
  Company Number: US-UCBSA-120910

PATIENT
  Sex: 0

DRUGS (9)
  1. CIMZIA [Suspect]
  2. CIMZIA [Suspect]
  3. PREDNISONE [Suspect]
  4. LIALDA [Concomitant]
  5. AMBIEN [Concomitant]
  6. XANAX D3 [Concomitant]
     Dosage: PRN
  7. AZATHIOPRIN [Concomitant]
  8. VANCOMYCIN [Concomitant]
  9. ROWASA [Concomitant]

REACTIONS (7)
  - Osteonecrosis [Unknown]
  - Clostridium difficile infection [Unknown]
  - Pancreatitis [Unknown]
  - Metabolic acidosis [Unknown]
  - Supraventricular tachycardia [Unknown]
  - Anxiety [Unknown]
  - Drug ineffective [Unknown]
